FAERS Safety Report 11473780 (Version 1)
Quarter: 2015Q3

REPORT INFORMATION
  Report Type: Spontaneous
  Country: US (occurrence: None)
  Receive Date: 20150908
  Receipt Date: 20150908
  Transmission Date: 20151125
  Serious: No
  Sender: FDA-Public Use
  Company Number: None

PATIENT
  Age: 58 Year
  Sex: Male
  Weight: 92.53 kg

DRUGS (16)
  1. ESCITALOPRAM [Concomitant]
     Active Substance: ESCITALOPRAM OXALATE
  2. LOSARTAN. [Concomitant]
     Active Substance: LOSARTAN
  3. HYDRALAZINE [Concomitant]
     Active Substance: HYDRALAZINE HYDROCHLORIDE
  4. IC METOPROLOL [Concomitant]
  5. FISH OIL [Concomitant]
     Active Substance: FISH OIL
  6. RANITIDINE [Concomitant]
     Active Substance: RANITIDINE\RANITIDINE HYDROCHLORIDE
  7. KETOFINE FUMARATE [Concomitant]
  8. LUMIGAN [Concomitant]
     Active Substance: BIMATOPROST
  9. MELOXICAM. [Concomitant]
     Active Substance: MELOXICAM
  10. ALBUTEROL. [Concomitant]
     Active Substance: ALBUTEROL
  11. METFORMIN [Concomitant]
     Active Substance: METFORMIN HYDROCHLORIDE
  12. SIMVASTATIN. [Concomitant]
     Active Substance: SIMVASTATIN
  13. NAPROXEN SODIIUM [Concomitant]
  14. JANUVIA [Suspect]
     Active Substance: SITAGLIPTIN PHOSPHATE
     Indication: TYPE 2 DIABETES MELLITUS
     Dosage: TAKEN BY MOUTH
  15. SPECTRAVITE SENIOR (MULTIVITAMIN) [Concomitant]
  16. AFRIN [Concomitant]
     Active Substance: OXYMETAZOLINE

REACTIONS (1)
  - Arthralgia [None]
